FAERS Safety Report 8532506-8 (Version None)
Quarter: 2012Q3

REPORT INFORMATION
  Report Type: 
  Country: None (occurrence: None)
  Receive Date: 20120717
  Receipt Date: 20120717
  Transmission Date: 20120928
  Serious: Yes (Other)
  Sender: FDA-Public Use
  Company Number: None

PATIENT
  Age: 59 Year
  Sex: Female
  Weight: 42.6381 kg

DRUGS (1)
  1. EVOXAC [Suspect]
     Indication: SJOGREN'S SYNDROME
     Dosage: 30MG 3 TIMES DAILY PO
     Route: 048
     Dates: start: 20120714, end: 20120714

REACTIONS (4)
  - NAUSEA [None]
  - TREMOR [None]
  - CHOREA [None]
  - INCOHERENT [None]
